FAERS Safety Report 16673648 (Version 6)
Quarter: 2020Q1

REPORT INFORMATION
  Report Type: Spontaneous
  Country: TW (occurrence: TW)
  Receive Date: 20190806
  Receipt Date: 20200302
  Transmission Date: 20200409
  Serious: Yes (Death, Life-Threatening, Hospitalization)
  Sender: FDA-Public Use
  Company Number: TW-CELGENEUS-TWN-20190710817

PATIENT
  Age: 80 Year
  Sex: Male
  Weight: 84.6 kg

DRUGS (62)
  1. TAZOCIN [Concomitant]
     Active Substance: PIPERACILLIN SODIUM\TAZOBACTAM SODIUM
     Dosage: 2250 MILLIGRAM
     Route: 041
     Dates: start: 20190713, end: 20190718
  2. CHLORPHENIRAMINE MALEATE. [Concomitant]
     Active Substance: CHLORPHENIRAMINE MALEATE
     Dosage: 5 MILLIGRAM
     Route: 041
     Dates: start: 20190713
  3. INSULIN-REGULAR HUMAN [Concomitant]
     Indication: DIABETES MELLITUS
     Dosage: 4 IU (INTERNATIONAL UNIT)
     Route: 041
     Dates: start: 20190712, end: 20190715
  4. NYSTATIN. [Concomitant]
     Active Substance: NYSTATIN
     Indication: ANTIFUNGAL PROPHYLAXIS
     Dosage: 20 MILLIGRAM
     Route: 048
     Dates: start: 20190712
  5. MOSAPRIDE CITRATE [Concomitant]
     Active Substance: MOSAPRIDE CITRATE
     Indication: PEPTIC ULCER
     Dosage: 15 MILLIGRAM
     Route: 048
     Dates: start: 20190529
  6. SENNOSIDES. [Concomitant]
     Active Substance: SENNOSIDES
     Indication: CONSTIPATION
     Dosage: 24 MILLIGRAM
     Route: 048
     Dates: start: 20190315
  7. DIOCTAHEDRAL SMECTITE [Concomitant]
     Active Substance: MONTMORILLONITE
     Indication: DIARRHOEA
     Route: 048
     Dates: start: 20190709, end: 20190713
  8. ACYCLOVIR. [Concomitant]
     Active Substance: ACYCLOVIR
     Indication: LIP ULCERATION
     Route: 061
     Dates: start: 20190729
  9. HYDROCORTISONE. [Concomitant]
     Active Substance: HYDROCORTISONE
     Dosage: 100 MILLIGRAM
     Route: 041
     Dates: start: 20190713, end: 20190717
  10. SENNOSIDES. [Concomitant]
     Active Substance: SENNOSIDES
     Dosage: 24 MILLIGRAM
     Route: 048
     Dates: start: 20190714, end: 20190721
  11. POTASSIUM PHOSPHATE [Concomitant]
     Active Substance: POTASSIUM PHOSPHATE
     Indication: PROPHYLAXIS
  12. N-ACETYLCYSTEINE [Concomitant]
     Active Substance: ACETYLCYSTEINE
     Indication: BRONCHITIS
     Dosage: 2 PACKAGE
     Route: 048
     Dates: start: 20190204
  13. SEVIKAR [Concomitant]
     Active Substance: AMLODIPINE BESYLATE\OLMESARTAN MEDOXOMIL
     Indication: CORONARY ARTERY DISEASE
     Route: 048
     Dates: start: 20190218
  14. NITROGLYCERIN. [Concomitant]
     Active Substance: NITROGLYCERIN
     Route: 060
     Dates: start: 20190521, end: 20190722
  15. FUROSEMIDE. [Concomitant]
     Active Substance: FUROSEMIDE
     Indication: OEDEMA PERIPHERAL
     Dosage: 20 MILLIGRAM
     Route: 041
     Dates: start: 20190718
  16. SPIRONOLACTONE. [Concomitant]
     Active Substance: SPIRONOLACTONE
     Indication: PLEURAL EFFUSION
     Dosage: 50 MILLIGRAM
     Route: 048
     Dates: start: 20190715, end: 20190721
  17. OTILONIUM. [Concomitant]
     Active Substance: OTILONIUM
     Indication: ABDOMINAL DISTENSION
     Dosage: 40 MILLIGRAM
     Route: 048
     Dates: start: 20190715, end: 20190715
  18. RANITIDINE. [Concomitant]
     Active Substance: RANITIDINE
     Indication: PEPTIC ULCER
     Dosage: 300 MILLIGRAM
     Route: 048
     Dates: start: 20190327
  19. MAGNESIUM OXIDE. [Concomitant]
     Active Substance: MAGNESIUM OXIDE
     Indication: CONSTIPATION
     Dosage: 1000 MILLIGRAM
     Route: 048
     Dates: start: 20190712
  20. POTASSIUM GLUCONATE [Concomitant]
     Active Substance: POTASSIUM GLUCONATE
     Dosage: 4760 MILLIGRAM
     Route: 048
     Dates: start: 20190709
  21. MAGNESIUM SULFATE. [Concomitant]
     Active Substance: MAGNESIUM SULFATE
     Indication: PROPHYLAXIS
     Route: 041
     Dates: start: 20190708, end: 20190708
  22. MICAFUNGIN. [Concomitant]
     Active Substance: MICAFUNGIN SODIUM
     Indication: PNEUMONIA
     Dosage: 100 MILLIGRAM
     Route: 041
     Dates: start: 20190713, end: 20190718
  23. BISOPROLOL [Concomitant]
     Active Substance: BISOPROLOL
     Indication: CORONARY ARTERY DISEASE
     Dosage: 2.5 MILLIGRAM
     Route: 048
     Dates: start: 20190712, end: 20190721
  24. NITROGLYCERIN. [Concomitant]
     Active Substance: NITROGLYCERIN
     Indication: CORONARY ARTERY DISEASE
     Route: 060
     Dates: start: 20190430
  25. NYSTATIN. [Concomitant]
     Active Substance: NYSTATIN
     Dosage: 20 MILLIGRAM
     Route: 048
     Dates: start: 20190713
  26. VORICONAZOLE. [Concomitant]
     Active Substance: VORICONAZOLE
     Indication: PNEUMONIA
     Dosage: 400 MILLIGRAM
     Route: 048
     Dates: start: 20190709, end: 20190711
  27. METOCLOPRAMIDE. [Concomitant]
     Active Substance: METOCLOPRAMIDE
     Indication: ABDOMINAL DISTENSION
     Dosage: 30 MILLIGRAM
     Route: 041
     Dates: start: 20190715, end: 20190718
  28. DIMETHICONE. [Concomitant]
     Active Substance: DIMETHICONE
     Indication: ABDOMINAL DISTENSION
     Dosage: 160 MILLIGRAM
     Route: 048
     Dates: start: 20190712, end: 20190713
  29. MAGNESIUM OXIDE. [Concomitant]
     Active Substance: MAGNESIUM OXIDE
     Dosage: 1000 MILLIGRAM
     Route: 048
     Dates: start: 20190714
  30. POTASSIUM GLUCONATE [Concomitant]
     Active Substance: POTASSIUM GLUCONATE
     Indication: HYPOKALAEMIA
     Dosage: 2380 MILLIGRAM
     Route: 048
     Dates: start: 20190507
  31. POTASSIUM GLUCONATE [Concomitant]
     Active Substance: POTASSIUM GLUCONATE
     Dosage: 4760 MILLIGRAM
     Route: 048
     Dates: start: 20190703
  32. AZITHROMYCIN ANHYDROUS. [Concomitant]
     Active Substance: AZITHROMYCIN ANHYDROUS
     Indication: PNEUMONIA
  33. LENOGRASTIM [Concomitant]
     Active Substance: LENOGRASTIM
     Indication: FEBRILE NEUTROPENIA
     Dosage: 250 MICROGRAM
     Route: 058
     Dates: start: 20190711, end: 20190712
  34. FEBUXOSTAT. [Concomitant]
     Active Substance: FEBUXOSTAT
     Indication: GOUT
  35. COLCHICINE. [Concomitant]
     Active Substance: COLCHICINE
     Indication: GOUT
     Dosage: .5 MILLIGRAM
     Route: 048
     Dates: start: 20190306
  36. BISOPROLOL [Concomitant]
     Active Substance: BISOPROLOL
     Indication: CARDIAC FAILURE
  37. GLIMEPIRIDE. [Concomitant]
     Active Substance: GLIMEPIRIDE
     Indication: DIABETES MELLITUS
     Dosage: 3 MILLIGRAM
     Route: 048
     Dates: start: 20190125
  38. FUROSEMIDE. [Concomitant]
     Active Substance: FUROSEMIDE
     Indication: CARDIAC FAILURE
     Dosage: 20 MILLIGRAM
     Route: 041
     Dates: start: 20190713, end: 20190714
  39. POVIDONE-IODINE. [Concomitant]
     Active Substance: POVIDONE-IODINE
     Indication: ORAL INFECTION
     Dosage: 30 MILLILITER
     Route: 048
     Dates: start: 20190703, end: 20190718
  40. BISACODYL. [Concomitant]
     Active Substance: BISACODYL
     Indication: CONSTIPATION
     Dosage: 20 MILLIGRAM
     Route: 054
     Dates: start: 20190713, end: 20190713
  41. POTASSIUM GLUCONATE [Concomitant]
     Active Substance: POTASSIUM GLUCONATE
     Dosage: 595 MILLIGRAM
     Route: 048
     Dates: start: 20190709, end: 20190711
  42. POTASSIUM GLUCONATE [Concomitant]
     Active Substance: POTASSIUM GLUCONATE
     Dosage: 4760 MILLIGRAM
     Route: 048
     Dates: start: 20190713, end: 20190718
  43. CALCIUM CHLORIDE. [Concomitant]
     Active Substance: CALCIUM CHLORIDE
     Indication: PROPHYLAXIS
     Dosage: 400 MILLIGRAM
     Route: 041
     Dates: start: 20190713, end: 20190713
  44. DEXAMETHASONE. [Concomitant]
     Active Substance: DEXAMETHASONE
     Indication: LIP ULCERATION
     Route: 061
     Dates: start: 20190728
  45. AZACITIDINE. [Suspect]
     Active Substance: AZACITIDINE
     Indication: ACUTE MYELOID LEUKAEMIA
     Dosage: 75 MILLIGRAM/SQ. METER
     Route: 041
     Dates: start: 20190313, end: 20190709
  46. CHLORPHENIRAMINE MALEATE. [Concomitant]
     Active Substance: CHLORPHENIRAMINE MALEATE
     Dosage: 5 MILLIGRAM
     Route: 041
     Dates: start: 20190717
  47. SEVIKAR [Concomitant]
     Active Substance: AMLODIPINE BESYLATE\OLMESARTAN MEDOXOMIL
     Indication: NEUTROPENIA
  48. MAGNESIUM OXIDE. [Concomitant]
     Active Substance: MAGNESIUM OXIDE
     Dosage: 1500 MILLIGRAM
     Route: 048
     Dates: start: 20190714
  49. POTASSIUM PHOSPHATE [Concomitant]
     Active Substance: POTASSIUM PHOSPHATE
     Indication: PROPHYLAXIS
     Dosage: 60 MILLIMOLE
     Route: 041
     Dates: start: 20190713, end: 20190713
  50. TAZOCIN [Concomitant]
     Active Substance: PIPERACILLIN SODIUM\TAZOBACTAM SODIUM
     Indication: FEBRILE NEUTROPENIA
     Dosage: 9000 MILLIGRAM
     Route: 041
     Dates: start: 20190703, end: 20190709
  51. FEBUXOSTAT. [Concomitant]
     Active Substance: FEBUXOSTAT
     Indication: OSTEOARTHRITIS
     Dosage: 40 MILLIGRAM
     Route: 048
     Dates: start: 20190120
  52. FUROSEMIDE. [Concomitant]
     Active Substance: FUROSEMIDE
     Indication: PLEURAL EFFUSION
     Dosage: 20 MILLIGRAM
     Route: 041
     Dates: start: 20190705, end: 20190709
  53. FUROSEMIDE. [Concomitant]
     Active Substance: FUROSEMIDE
     Indication: PULMONARY OEDEMA
     Dosage: 80 MILLIGRAM
     Route: 048
     Dates: start: 20190709, end: 20190711
  54. SPIRONOLACTONE. [Concomitant]
     Active Substance: SPIRONOLACTONE
     Indication: CARDIAC FAILURE
  55. POTASSIUM CHLORIDE. [Concomitant]
     Active Substance: POTASSIUM CHLORIDE
     Indication: HYPOKALAEMIA
     Route: 041
     Dates: start: 20190712, end: 20190712
  56. MICAFUNGIN. [Concomitant]
     Active Substance: MICAFUNGIN SODIUM
     Indication: FEBRILE NEUTROPENIA
     Dosage: 100 MILLIGRAM
     Route: 041
     Dates: start: 20190702, end: 20190709
  57. TAZOCIN [Concomitant]
     Active Substance: PIPERACILLIN SODIUM\TAZOBACTAM SODIUM
     Indication: PNEUMONIA
     Dosage: 3375 MILLIGRAM
     Route: 041
     Dates: start: 20190711, end: 20190712
  58. AZITHROMYCIN ANHYDROUS. [Concomitant]
     Active Substance: AZITHROMYCIN ANHYDROUS
     Indication: FEBRILE NEUTROPENIA
     Dosage: 500 MILLIGRAM
     Route: 048
     Dates: start: 20190713, end: 20190713
  59. CHLORPHENIRAMINE MALEATE. [Concomitant]
     Active Substance: CHLORPHENIRAMINE MALEATE
     Indication: BLOOD DISORDER PROPHYLAXIS
     Dosage: 5 MILLIGRAM
     Route: 041
     Dates: start: 20190708
  60. HYDROCORTISONE. [Concomitant]
     Active Substance: HYDROCORTISONE
     Indication: BLOOD DISORDER PROPHYLAXIS
     Dosage: 100 MILLIGRAM
     Route: 041
     Dates: start: 20190708
  61. BISOPROLOL [Concomitant]
     Active Substance: BISOPROLOL
     Indication: HYPERTENSION
     Dosage: 5 MILLIGRAM
     Route: 048
     Dates: end: 20190712
  62. FUROSEMIDE. [Concomitant]
     Active Substance: FUROSEMIDE
     Indication: PROPHYLAXIS
     Dosage: 20 MILLIGRAM
     Route: 041
     Dates: start: 20190715, end: 20190718

REACTIONS (1)
  - Cerebral haemorrhage [Fatal]

NARRATIVE: CASE EVENT DATE: 20190722
